FAERS Safety Report 9857961 (Version 1)
Quarter: 2014Q1

REPORT INFORMATION
  Report Type: Spontaneous
  Country: US (occurrence: US)
  Receive Date: 20140131
  Receipt Date: 20140131
  Transmission Date: 20141002
  Serious: No
  Sender: FDA-Public Use
  Company Number: US-PFIZER INC-2014028543

PATIENT
  Age: 58 Year
  Sex: Male
  Weight: 118 kg

DRUGS (3)
  1. CELEBREX [Suspect]
     Indication: ARTHRALGIA
     Dosage: 200 MG, 2X/DAY
     Dates: start: 20140122, end: 20140125
  2. DIOVAN (VALSARTAN) [Concomitant]
     Indication: BLOOD PRESSURE
     Dosage: UNK, 1X/DAY
  3. TOPROL XL [Concomitant]
     Indication: BLOOD PRESSURE
     Dosage: UNK, 1X/DAY

REACTIONS (4)
  - Rash [Recovering/Resolving]
  - Lip swelling [Recovering/Resolving]
  - Swelling face [Recovering/Resolving]
  - Pruritus [Recovering/Resolving]
